FAERS Safety Report 5709298-0 (Version None)
Quarter: 2008Q2

REPORT INFORMATION
  Report Type: 
  Country: None (occurrence: None)
  Receive Date: 20080418
  Receipt Date: 20080404
  Transmission Date: 20081010
  Serious: Yes (Hospitalization, Other)
  Sender: FDA-Public Use
  Company Number: US-AMGEN-US268460

PATIENT
  Sex: Male
  Weight: 66.3 kg

DRUGS (18)
  1. ARANESP [Suspect]
     Indication: RENAL FAILURE CHRONIC
     Dates: start: 20060501, end: 20071226
  2. ARICEPT [Concomitant]
     Route: 048
  3. FLOMAX [Concomitant]
     Route: 048
     Dates: end: 20080318
  4. NOVOLIN 70/30 [Concomitant]
     Route: 058
  5. VALTREX [Concomitant]
     Route: 048
     Dates: end: 20080318
  6. PREDNISONE [Concomitant]
     Dates: end: 20070814
  7. MEGACE [Concomitant]
     Route: 048
     Dates: start: 20071221, end: 20080318
  8. DANAZOL [Concomitant]
     Dates: end: 20080318
  9. ZOLOFT [Concomitant]
     Route: 048
  10. FINESTARIDE [Concomitant]
     Route: 048
  11. TIMOLOL MALEATE [Concomitant]
     Route: 047
  12. CYCLOSPORINE [Concomitant]
     Route: 048
     Dates: end: 20080318
  13. CYCLOSPORINE [Concomitant]
     Route: 048
     Dates: end: 20080318
  14. BACTRIM DS [Concomitant]
     Route: 048
  15. CYMBALTA [Concomitant]
     Route: 048
     Dates: end: 20080318
  16. NYSTATIN [Concomitant]
     Dates: start: 20080115, end: 20080318
  17. SOLU-CORTEF [Concomitant]
     Dates: start: 20070509, end: 20070530
  18. RITUXIMAB [Concomitant]
     Route: 042
     Dates: start: 20070509, end: 20070530

REACTIONS (7)
  - ANAEMIA [None]
  - APLASIA PURE RED CELL [None]
  - ASTHENIA [None]
  - BLOOD GLUCOSE INCREASED [None]
  - DEHYDRATION [None]
  - FALL [None]
  - PAIN IN EXTREMITY [None]
